FAERS Safety Report 12844664 (Version 1)
Quarter: 2016Q4

REPORT INFORMATION
  Report Type: Report from Study
  Country: IT (occurrence: IT)
  Receive Date: 20161013
  Receipt Date: 20161013
  Transmission Date: 20170207
  Serious: Yes (Other)
  Sender: FDA-Public Use
  Company Number: IT-GILEAD-2016-0237623

PATIENT
  Age: 52 Year
  Sex: Male
  Weight: 94 kg

DRUGS (2)
  1. ATRIPLA [Suspect]
     Active Substance: EFAVIRENZ\EMTRICITABINE\TENOFOVIR DISOPROXIL FUMARATE
     Indication: HIV INFECTION
     Dosage: UNK
     Route: 065
  2. ESKIM [Concomitant]
     Active Substance: OMEGA-3 FATTY ACIDS
     Indication: HYPERTRIGLYCERIDAEMIA
     Dosage: 1000 MG, UNK
     Dates: start: 20160622

REACTIONS (3)
  - Osteoporosis [Unknown]
  - Spinal fracture [Unknown]
  - Osteopenia [Unknown]

NARRATIVE: CASE EVENT DATE: 2016
